FAERS Safety Report 7442183-5 (Version None)
Quarter: 2011Q2

REPORT INFORMATION
  Report Type: 
  Country: None (occurrence: None)
  Receive Date: 20110428
  Receipt Date: 20110418
  Transmission Date: 20111010
  Serious: Yes (Disabling, Other)
  Sender: FDA-Public Use
  Company Number: PHHY2011DE34527

PATIENT
  Sex: Female

DRUGS (1)
  1. EMBOLEX [Suspect]
     Dosage: 3000IU + 0.5 MG

REACTIONS (1)
  - LEG AMPUTATION [None]
